FAERS Safety Report 13545028 (Version 1)
Quarter: 2017Q2

REPORT INFORMATION
  Report Type: Spontaneous
  Country: US (occurrence: US)
  Receive Date: 20170515
  Receipt Date: 20170515
  Transmission Date: 20170830
  Serious: Yes (Hospitalization)
  Sender: FDA-Public Use
  Company Number: US-ELI_LILLY_AND_COMPANY-US201705001082

PATIENT
  Age: 55 Year
  Sex: Male

DRUGS (4)
  1. FLUOXETINE HYDROCHLORIDE 90MG [Suspect]
     Active Substance: FLUOXETINE HYDROCHLORIDE
     Indication: PSYCHOTIC DISORDER
  2. FLUOXETINE HYDROCHLORIDE 90MG [Suspect]
     Active Substance: FLUOXETINE HYDROCHLORIDE
     Indication: OBSESSIVE-COMPULSIVE DISORDER
     Dosage: 180 MG, WEEKLY (1/W)
     Route: 048
  3. PROZAC WEEKLY [Suspect]
     Active Substance: FLUOXETINE HYDROCHLORIDE
     Indication: OBSESSIVE-COMPULSIVE DISORDER
     Dosage: 180 MG, WEEKLY (1/W)
     Route: 048
     Dates: start: 2007
  4. PROZAC WEEKLY [Suspect]
     Active Substance: FLUOXETINE HYDROCHLORIDE
     Indication: PSYCHOTIC DISORDER

REACTIONS (7)
  - Benign prostatic hyperplasia [Not Recovered/Not Resolved]
  - Drug ineffective [Recovered/Resolved]
  - Psychotic disorder [Recovered/Resolved]
  - Stress [Unknown]
  - Drug prescribing error [Not Recovered/Not Resolved]
  - Delusion [Recovered/Resolved]
  - Paranoia [Recovered/Resolved]
